FAERS Safety Report 7733415-4 (Version None)
Quarter: 2011Q3

REPORT INFORMATION
  Report Type: 
  Country: None (occurrence: None)
  Receive Date: 20110907
  Receipt Date: 20110810
  Transmission Date: 20111222
  Serious: No
  Sender: FDA-Public Use
  Company Number: US-BAYER-2011-074485

PATIENT
  Age: 68 Year
  Sex: Male

DRUGS (2)
  1. LEUKINE [Suspect]
     Indication: PROSTATE CANCER
     Dosage: UNK
     Dates: start: 20110601
  2. LEUKINE [Suspect]
     Dosage: 1 ML, UNK
     Route: 058
     Dates: start: 20110809, end: 20110809

REACTIONS (3)
  - INJECTION SITE INFLAMMATION [None]
  - RASH ERYTHEMATOUS [None]
  - INJECTION SITE PRURITUS [None]
